FAERS Safety Report 6864434-8 (Version None)
Quarter: 2010Q3

REPORT INFORMATION
  Report Type: 
  Country: None (occurrence: None)
  Receive Date: 20100721
  Receipt Date: 20080321
  Transmission Date: 20110219
  Serious: No
  Sender: FDA-Public Use
  Company Number: US-PFIZER INC-2008027266

PATIENT
  Sex: Female
  Weight: 61.2 kg

DRUGS (8)
  1. CHANTIX [Suspect]
     Indication: SMOKING CESSATION THERAPY
     Dates: start: 20080307
  2. PSYLLIUM [Suspect]
     Indication: DIARRHOEA
     Dates: start: 20080314, end: 20080314
  3. ZOLOFT [Concomitant]
  4. LIPITOR [Concomitant]
  5. NEXIUM [Concomitant]
  6. TOPROL-XL [Concomitant]
  7. ACETYLSALICYLIC ACID [Concomitant]
  8. LOMOTIL [Concomitant]
     Indication: IRRITABLE BOWEL SYNDROME
     Dates: end: 20080314

REACTIONS (4)
  - BURNING SENSATION [None]
  - DIARRHOEA [None]
  - DRY MOUTH [None]
  - PAIN [None]
